FAERS Safety Report 22656065 (Version 1)
Quarter: 2023Q2

REPORT INFORMATION
  Report Type: Spontaneous
  Country: US (occurrence: US)
  Receive Date: 20230629
  Receipt Date: 20230629
  Transmission Date: 20230721
  Serious: No
  Sender: FDA-Public Use
  Company Number: US-PERRIGO-22US012342

PATIENT
  Age: 5 Year
  Sex: Female
  Weight: 14.512 kg

DRUGS (2)
  1. LORATADINE [Suspect]
     Active Substance: LORATADINE
     Indication: Perennial allergy
     Dosage: 10 MG, SINGLE
     Route: 048
     Dates: start: 20220908, end: 20220908
  2. LORATADINE [Suspect]
     Active Substance: LORATADINE
     Dosage: 5 MG, PRN
     Route: 048
     Dates: start: 20190808

REACTIONS (1)
  - Accidental exposure to product by child [Recovered/Resolved]

NARRATIVE: CASE EVENT DATE: 20220908
